FAERS Safety Report 15992126 (Version 1)
Quarter: 2019Q1

REPORT INFORMATION
  Report Type: Spontaneous
  Country: US (occurrence: US)
  Receive Date: 20190221
  Receipt Date: 20190221
  Transmission Date: 20190418
  Serious: No
  Sender: FDA-Public Use
  Company Number: US-ALLERGAN-1834671US

PATIENT
  Age: 71 Year
  Sex: Female

DRUGS (2)
  1. GELNIQUE [Suspect]
     Active Substance: OXYBUTYNIN
     Indication: HYPERTONIC BLADDER
     Dosage: 1 PUMP DAILY
     Route: 061
     Dates: end: 201807
  2. GELNIQUE [Suspect]
     Active Substance: OXYBUTYNIN
     Dosage: 1 PUMP DAILY
     Route: 061
     Dates: start: 20180719

REACTIONS (6)
  - Adverse drug reaction [Unknown]
  - Product dose omission [Unknown]
  - Blood urine present [Unknown]
  - Incontinence [Unknown]
  - Hypertonic bladder [Unknown]
  - Drug ineffective [Unknown]
